FAERS Safety Report 5551940-1 (Version None)
Quarter: 2007Q4

REPORT INFORMATION
  Report Type: 
  Country: None (occurrence: None)
  Receive Date: 20071212
  Receipt Date: 20071130
  Transmission Date: 20080405
  Serious: Yes (Other)
  Sender: FDA-Public Use
  Company Number: US-PFIZER INC-2007101524

PATIENT
  Sex: Female

DRUGS (9)
  1. LYRICA [Suspect]
     Indication: NEURALGIA
     Dosage: DAILY DOSE:200MG
  2. METHOTREXATE [Suspect]
  3. FOLIC ACID [Concomitant]
  4. NITROGLYCERIN [Concomitant]
  5. PREVACID [Concomitant]
  6. METOPROLOL [Concomitant]
  7. LOVASTATIN [Concomitant]
  8. GLIMEPIRIDE [Concomitant]
  9. METFORMIN HCL [Concomitant]

REACTIONS (4)
  - CHOKING [None]
  - COUGH [None]
  - DYSPHAGIA [None]
  - FOREIGN BODY TRAUMA [None]
